FAERS Safety Report 9318453 (Version 1)
Quarter: 2012Q4

REPORT INFORMATION
  Report Type: Spontaneous
  Country: US (occurrence: None)
  Receive Date: 20121214
  Receipt Date: 20121214
  Transmission Date: 20130627
  Serious: Yes (Hospitalization)
  Sender: FDA-Public Use
  Company Number: 136158 1

PATIENT
  Age: 71 Year
  Sex: Male
  Weight: 76 kg

DRUGS (1)
  1. LEUCOVORIN CALCIUM [Suspect]
     Indication: METASTATIC COLORECTAL CANCER
     Dosage: 400mg/m2 on day one every 14 day
     Dates: start: 20120216, end: 20120525

REACTIONS (5)
  - Neuropathic arthropathy [None]
  - Fall [None]
  - Subarachnoid haemorrhage [None]
  - Subdural haematoma [None]
  - Pseudomonas infection [None]
